FAERS Safety Report 15074884 (Version 1)
Quarter: 2018Q2

REPORT INFORMATION
  Report Type: Report from Study
  Country: US (occurrence: US)
  Receive Date: 20180627
  Receipt Date: 20180627
  Transmission Date: 20180711
  Serious: No
  Sender: FDA-Public Use
  Company Number: US-SAOL THERAPEUTICS-2017SAO01538

PATIENT
  Sex: Female

DRUGS (6)
  1. SUFENTA [Suspect]
     Active Substance: SUFENTANIL CITRATE
     Dosage: 109.96 ?G, \DAY
     Route: 037
     Dates: start: 20160421, end: 20160518
  2. BACLOFEN. [Suspect]
     Active Substance: BACLOFEN
     Dosage: 577.31 ?G, \DAY
     Route: 037
     Dates: start: 20160421, end: 20160518
  3. BACLOFEN. [Suspect]
     Active Substance: BACLOFEN
     Dosage: 628 ?G, \DAY
     Route: 037
     Dates: start: 20160518
  4. BUPIVACAINE. [Suspect]
     Active Substance: BUPIVACAINE
     Dosage: 8.389 MG, \DAY
     Route: 037
     Dates: start: 20160518
  5. BUPIVACAINE. [Suspect]
     Active Substance: BUPIVACAINE
     Dosage: 7.697 MG, \DAY
     Route: 037
     Dates: start: 20160421, end: 20160518
  6. SUFENTA [Suspect]
     Active Substance: SUFENTANIL CITRATE
     Dosage: 119.92 ?G, \DAY
     Route: 037
     Dates: start: 20160518, end: 20160608

REACTIONS (3)
  - Paranoia [Recovered/Resolved]
  - Insomnia [Recovered/Resolved]
  - Thinking abnormal [Recovered/Resolved]
